FAERS Safety Report 26059921 (Version 1)
Quarter: 2025Q4

REPORT INFORMATION
  Report Type: Spontaneous
  Country: JP (occurrence: JP)
  Receive Date: 20251118
  Receipt Date: 20251118
  Transmission Date: 20260117
  Serious: Yes (Death, Other)
  Sender: ABBVIE
  Company Number: JP-ABBVIE-6552765

PATIENT
  Age: 47 Year
  Sex: Male

DRUGS (3)
  1. VENCLEXTA [Suspect]
     Active Substance: VENETOCLAX
     Indication: Acute myeloid leukaemia
     Dosage: DURATION TEXT: 21 DAYS ?- 3 COURSES
     Route: 048
  2. VENCLEXTA [Suspect]
     Active Substance: VENETOCLAX
     Indication: Acute myeloid leukaemia
     Route: 048
  3. AZACITIDINE [Concomitant]
     Active Substance: AZACITIDINE
     Indication: Acute myeloid leukaemia
     Dosage: DURATION TEXT: 5 DAYS ?- 3 COURSES

REACTIONS (5)
  - Acute graft versus host disease in intestine [Fatal]
  - Febrile neutropenia [Unknown]
  - Organising pneumonia [Fatal]
  - Interstitial lung disease [Unknown]
  - COVID-19 [Unknown]
